FAERS Safety Report 14757737 (Version 1)
Quarter: 2018Q2

REPORT INFORMATION
  Report Type: Spontaneous
  Country: US (occurrence: US)
  Receive Date: 20180409
  Receipt Date: 20180409
  Transmission Date: 20180711
  Serious: No
  Sender: FDA-Public Use
  Company Number: None

PATIENT
  Sex: Female
  Weight: 200 kg

DRUGS (1)
  1. PACLITAXEL, 50 MG/ML [Suspect]
     Active Substance: PACLITAXEL

REACTIONS (2)
  - Infusion related reaction [None]
  - Product use complaint [None]
